FAERS Safety Report 5288545-6 (Version None)
Quarter: 2007Q2

REPORT INFORMATION
  Report Type: 
  Country: None (occurrence: None)
  Receive Date: 20070405
  Receipt Date: 20070220
  Transmission Date: 20071010
  Serious: No
  Sender: FDA-Public Use
  Company Number: US-JNJFOC-20070205003

PATIENT
  Age: 33 Year
  Sex: Male

DRUGS (2)
  1. INVEGA [Suspect]
     Indication: SCHIZOPHRENIA
     Route: 048
  2. OTHER MEDICATIONS [Concomitant]

REACTIONS (3)
  - DROOLING [None]
  - EXTRAPYRAMIDAL DISORDER [None]
  - STUPOR [None]
